FAERS Safety Report 19136776 (Version 9)
Quarter: 2022Q1

REPORT INFORMATION
  Report Type: Report from Study
  Country: US (occurrence: US)
  Receive Date: 20210414
  Receipt Date: 20220305
  Transmission Date: 20220424
  Serious: Yes (Other)
  Sender: FDA-Public Use
  Company Number: NVSC2021US076875

PATIENT
  Age: 28 Year
  Sex: Female

DRUGS (2)
  1. KESIMPTA [Suspect]
     Active Substance: OFATUMUMAB
     Indication: Clinically isolated syndrome
     Dosage: 20 MG, QMO
     Route: 058
     Dates: start: 20210312
  2. KESIMPTA [Suspect]
     Active Substance: OFATUMUMAB
     Indication: Relapsing-remitting multiple sclerosis

REACTIONS (13)
  - Haemorrhoids [Unknown]
  - Haematochezia [Recovered/Resolved]
  - Asthenopia [Recovering/Resolving]
  - Aura [Recovering/Resolving]
  - Photophobia [Recovering/Resolving]
  - Feeling abnormal [Recovering/Resolving]
  - Device temperature issue [Unknown]
  - Visual impairment [Recovering/Resolving]
  - Illness [Recovering/Resolving]
  - Headache [Recovering/Resolving]
  - Fatigue [Recovered/Resolved]
  - Chills [Recovered/Resolved]
  - Pyrexia [Recovered/Resolved]

NARRATIVE: CASE EVENT DATE: 20210301
